FAERS Safety Report 4796690-4 (Version None)
Quarter: 2005Q4

REPORT INFORMATION
  Report Type: 
  Country: None (occurrence: None)
  Receive Date: 20051003
  Receipt Date: 20040823
  Transmission Date: 20060501
  Serious: Yes (Other)
  Sender: FDA-Public Use
  Company Number: PHEH2004US09193

PATIENT
  Sex: Female

DRUGS (6)
  1. ESTALIS COMBIPATCH(ESTRADIOL, NORETHISTERONE ACETATE) UNKNOWN [Suspect]
     Indication: HORMONE REPLACEMENT THERAPY
     Dosage: TRANSDERMAL
     Route: 062
     Dates: start: 19880101, end: 19960101
  2. PREMARIN [Suspect]
     Dosage: ORAL
     Route: 048
     Dates: start: 19880101, end: 19960101
  3. PROVERA [Suspect]
     Dates: start: 19880101, end: 19960101
  4. PREMPRO [Suspect]
  5. MEDROXYPROGESTERONE ACETATE [Suspect]
  6. ESTROGENS SOL/INJ [Suspect]

REACTIONS (1)
  - BREAST CANCER [None]
